FAERS Safety Report 6921139-2 (Version None)
Quarter: 2010Q3

REPORT INFORMATION
  Report Type: 
  Country: None (occurrence: None)
  Receive Date: 20100812
  Receipt Date: 20100730
  Transmission Date: 20110219
  Serious: Yes (Other)
  Sender: FDA-Public Use
  Company Number: FR-B.I. PHARMACEUTICALS,INC./RIDGEFIELD-2010-FF-00397FF

PATIENT
  Sex: Female

DRUGS (6)
  1. PRAMIPEXOLE DIHYDROCHLORIDE [Suspect]
     Indication: PARKINSON'S DISEASE
     Dosage: 2.1 MG
     Route: 048
     Dates: start: 20070101
  2. PRAMIPEXOLE DIHYDROCHLORIDE [Suspect]
     Dosage: 1.4 MG
     Route: 048
  3. PRAMIPEXOLE DIHYDROCHLORIDE [Suspect]
     Dosage: 1.05 MG
     Route: 048
  4. ARTANE [Suspect]
     Indication: PARKINSON'S DISEASE
  5. TRIHEXYPHENIDYL HCL [Concomitant]
     Indication: PARKINSON'S DISEASE
     Dosage: 7.5 MG
     Route: 048
  6. DOMPERIDONE [Concomitant]
     Dosage: 1/2 TABLET DAILY
     Route: 048

REACTIONS (8)
  - ADVERSE DRUG REACTION [None]
  - BLOOD PRESSURE DECREASED [None]
  - DAYDREAMING [None]
  - HALLUCINATION [None]
  - HYPERACUSIS [None]
  - INSOMNIA [None]
  - PHOTOPHOBIA [None]
  - SOMNOLENCE [None]
